FAERS Safety Report 11268430 (Version 1)
Quarter: 2015Q3

REPORT INFORMATION
  Report Type: Spontaneous
  Country: US (occurrence: US)
  Receive Date: 20150714
  Receipt Date: 20150714
  Transmission Date: 20151125
  Serious: No
  Sender: FDA-Public Use
  Company Number: US-JNJFOC-20150621039

PATIENT
  Sex: Male

DRUGS (4)
  1. XARELTO [Suspect]
     Active Substance: RIVAROXABAN
     Indication: PRODUCT USED FOR UNKNOWN INDICATION
     Route: 048
     Dates: start: 201506
  2. CURCUMA LONGA RHIZOME [Concomitant]
     Indication: NUTRITIONAL SUPPLEMENTATION
     Route: 065
  3. OMEGA 3 [Concomitant]
     Active Substance: OMEGA-3 FATTY ACIDS
     Indication: NUTRITIONAL SUPPLEMENTATION
     Route: 065
  4. WOBENZYM (AMYLASE\BROMELAINS\CHYMOTRYPSIN\PANCRELIPASE\PAPAIN\RUTIN\TRYPSIN) [Concomitant]
     Active Substance: AMYLASE\BROMELAINS\CHYMOTRYPSIN\PANCRELIPASE\PAPAIN\RUTIN\TRYPSIN
     Indication: NUTRITIONAL SUPPLEMENTATION
     Route: 065

REACTIONS (1)
  - Panic attack [Not Recovered/Not Resolved]

NARRATIVE: CASE EVENT DATE: 20150626
